FAERS Safety Report 9445952 (Version 3)
Quarter: 2013Q4

REPORT INFORMATION
  Report Type: Spontaneous
  Country: JP (occurrence: JP)
  Receive Date: 20130807
  Receipt Date: 20131105
  Transmission Date: 20140711
  Serious: Yes (Hospitalization, Other)
  Sender: FDA-Public Use
  Company Number: JP-GE HEALTHCARE MEDICAL DIAGNOSTICS-OMPQ-PR-1308S-0985

PATIENT
  Age: 68 Year
  Sex: Male

DRUGS (25)
  1. OMNIPAQUE [Suspect]
     Indication: TUMOUR EXCISION
     Route: 042
     Dates: start: 20130704, end: 20130704
  2. OMNIPAQUE [Suspect]
     Indication: DIAGNOSTIC PROCEDURE
  3. GABEXATE MESILATE [Suspect]
     Indication: DISSEMINATED INTRAVASCULAR COAGULATION
     Route: 042
     Dates: start: 20130705
  4. GABEXATE MESILATE [Suspect]
     Route: 042
     Dates: start: 20130706
  5. GABEXATE MESILATE [Suspect]
     Route: 042
     Dates: start: 20130706
  6. GABEXATE MESILATE [Suspect]
     Route: 042
     Dates: start: 20130707
  7. GABEXATE MESILATE [Suspect]
     Route: 042
     Dates: start: 20130708
  8. VENOGLOBULIN [Concomitant]
     Indication: AGRANULOCYTOSIS
     Route: 042
     Dates: start: 20130711, end: 20130713
  9. TATHION [Concomitant]
     Indication: LIVER DISORDER
     Route: 042
     Dates: start: 20130705, end: 20130707
  10. SOLDEM 3A [Concomitant]
     Indication: FLUID REPLACEMENT
     Route: 042
     Dates: start: 20130704, end: 20130716
  11. SEISHOKU [Concomitant]
     Indication: FLUID REPLACEMENT
     Route: 042
     Dates: start: 20130704, end: 20130705
  12. HYDROCORTONE [Concomitant]
     Indication: HYPERSENSITIVITY
     Route: 042
     Dates: start: 20130704
  13. METILON INJECTION [Concomitant]
     Indication: ANTIPYRESIS
     Route: 058
     Dates: start: 20130704, end: 20130705
  14. VEEN-F [Concomitant]
     Indication: FLUID REPLACEMENT
     Route: 042
     Dates: start: 20130704, end: 20130716
  15. PRIMPERAN [Concomitant]
     Indication: NAUSEA
     Route: 042
     Dates: start: 20130704
  16. VITAMEDIN [Concomitant]
     Indication: MEDICAL DIET
     Route: 042
     Dates: start: 20130704, end: 20130706
  17. STRONG NEO-MINOPHAGEN C [Concomitant]
     Indication: LIVER DISORDER
     Route: 042
     Dates: start: 20130705, end: 20130707
  18. DEXTROSE [Concomitant]
     Indication: FLUID REPLACEMENT
     Route: 042
     Dates: start: 20130705, end: 20130708
  19. NEOAMIYU [Concomitant]
     Indication: FLUID REPLACEMENT
     Route: 042
     Dates: start: 20130705, end: 20130708
  20. KCL [Concomitant]
     Indication: ELECTROLYTE SUBSTITUTION THERAPY
     Route: 065
     Dates: start: 20130707
  21. NEU-UP [Concomitant]
     Indication: AGRANULOCYTOSIS
     Route: 042
     Dates: start: 20130711, end: 20130716
  22. SULPERAZON [Concomitant]
     Indication: AGRANULOCYTOSIS
     Route: 042
     Dates: start: 20130711, end: 20130717
  23. HEPAFLUSH [Concomitant]
     Indication: VENIPUNCTURE
     Route: 042
     Dates: start: 20130716
  24. BASEN [Concomitant]
     Indication: DIABETES MELLITUS
     Route: 048
  25. BARACLUDE [Concomitant]
     Indication: HEPATITIS B
     Route: 048

REACTIONS (6)
  - Liver disorder [Recovered/Resolved]
  - Platelet count decreased [Recovered/Resolved]
  - Disseminated intravascular coagulation [Recovered/Resolved]
  - White blood cell count decreased [Recovered/Resolved]
  - Pancreatitis [Recovered/Resolved]
  - Diarrhoea [Recovered/Resolved]
